FAERS Safety Report 21224058 (Version 1)
Quarter: 2022Q3

REPORT INFORMATION
  Report Type: Spontaneous
  Country: US (occurrence: US)
  Receive Date: 20220817
  Receipt Date: 20220817
  Transmission Date: 20221026
  Serious: No
  Sender: FDA-Public Use
  Company Number: US-SA-2022MK000060

PATIENT
  Age: 74 Year
  Sex: Female

DRUGS (2)
  1. AFREZZA [Suspect]
     Active Substance: INSULIN HUMAN
     Indication: Type 2 diabetes mellitus
     Dates: start: 20220314, end: 20220321
  2. AFREZZA [Suspect]
     Active Substance: INSULIN HUMAN
     Dates: start: 20220314, end: 20220321

REACTIONS (1)
  - Cough [Unknown]

NARRATIVE: CASE EVENT DATE: 20220314
